FAERS Safety Report 22232069 (Version 1)
Quarter: 2023Q2

REPORT INFORMATION
  Report Type: Spontaneous
  Country: US (occurrence: US)
  Receive Date: 20230420
  Receipt Date: 20230420
  Transmission Date: 20230721
  Serious: No
  Sender: FDA-Public Use
  Company Number: US-PTx-2022000043

PATIENT
  Age: 55 Year
  Sex: Female

DRUGS (1)
  1. LEUKINE [Suspect]
     Active Substance: SARGRAMOSTIM
     Indication: Alveolar proteinosis
     Dosage: UNKNOWN
     Route: 055

REACTIONS (2)
  - Drug intolerance [Recovering/Resolving]
  - Drug hypersensitivity [Recovering/Resolving]
